FAERS Safety Report 5793090-5 (Version None)
Quarter: 2008Q2

REPORT INFORMATION
  Report Type: 
  Country: None (occurrence: None)
  Receive Date: 20080626
  Receipt Date: 20080626
  Transmission Date: 20081010
  Serious: Yes (Hospitalization)
  Sender: FDA-Public Use
  Company Number: None

PATIENT
  Sex: Female
  Weight: 49.27 kg

DRUGS (2)
  1. CARBOPLATIN [Suspect]
     Dosage: 590 MG
     Dates: start: 20080617, end: 20080617
  2. TAXOL [Suspect]
     Dosage: 270 MG
     Dates: end: 20080617

REACTIONS (13)
  - BLOOD CHLORIDE DECREASED [None]
  - BLOOD GLUCOSE INCREASED [None]
  - BLOOD UREA INCREASED [None]
  - HYPOKALAEMIA [None]
  - HYPONATRAEMIA [None]
  - NAUSEA [None]
  - PLATELET COUNT DECREASED [None]
  - PROTEIN URINE PRESENT [None]
  - URINARY SEDIMENT ABNORMAL [None]
  - URINE KETONE BODY PRESENT [None]
  - URINE LEUKOCYTE ESTERASE POSITIVE [None]
  - VOMITING [None]
  - WHITE BLOOD CELL COUNT DECREASED [None]
